FAERS Safety Report 9157952 (Version 2)
Quarter: 2013Q1

REPORT INFORMATION
  Report Type: Spontaneous
  Country: FR (occurrence: FR)
  Receive Date: 20130312
  Receipt Date: 20130315
  Transmission Date: 20140127
  Serious: Yes (Hospitalization, Other)
  Sender: FDA-Public Use
  Company Number: FR-ASTRAZENECA-2013SE15875

PATIENT
  Age: 45 Year
  Sex: Female

DRUGS (6)
  1. XEROQUEL [Suspect]
     Indication: DEPRESSION
     Route: 048
     Dates: start: 20121224
  2. XEROQUEL [Suspect]
     Indication: DEPRESSION
     Route: 048
     Dates: end: 20130107
  3. XEROQUEL [Suspect]
     Indication: DEPRESSION
     Route: 048
     Dates: start: 20130107, end: 20130114
  4. XEROQUEL [Suspect]
     Indication: DEPRESSION
     Route: 048
     Dates: start: 20130114
  5. ZOLOFT [Concomitant]
     Route: 048
  6. LYSANXIA [Concomitant]
     Route: 048

REACTIONS (3)
  - Pulmonary embolism [Recovered/Resolved]
  - Phlebitis [Recovered/Resolved]
  - Weight increased [Unknown]
